FAERS Safety Report 21824313 (Version 1)
Quarter: 2023Q1

REPORT INFORMATION
  Report Type: Spontaneous
  Country: US (occurrence: None)
  Receive Date: 20230105
  Receipt Date: 20230105
  Transmission Date: 20230418
  Serious: Yes (Hospitalization)
  Sender: FDA-Public Use
  Company Number: None

PATIENT
  Sex: Female
  Weight: 70.6 kg

DRUGS (4)
  1. DARATUMUMAB\HYALURONIDASE-FIHJ [Suspect]
     Active Substance: DARATUMUMAB\HYALURONIDASE-FIHJ
  2. DEXAMETHASONE [Concomitant]
     Active Substance: DEXAMETHASONE
  3. LENALIDOMIDE [Concomitant]
     Active Substance: LENALIDOMIDE
  4. VELCADE [Concomitant]
     Active Substance: BORTEZOMIB

REACTIONS (7)
  - Unresponsive to stimuli [None]
  - Vomiting [None]
  - Nasopharyngitis [None]
  - Ear infection [None]
  - Mental status changes [None]
  - Meningitis [None]
  - Pneumonia streptococcal [None]

NARRATIVE: CASE EVENT DATE: 20230102
